FAERS Safety Report 7397941-2 (Version None)
Quarter: 2011Q2

REPORT INFORMATION
  Report Type: 
  Country: None (occurrence: None)
  Receive Date: 20110406
  Receipt Date: 20101018
  Transmission Date: 20111010
  Serious: Yes (Hospitalization, Other)
  Sender: FDA-Public Use
  Company Number: US-BAYER-201022660NA

PATIENT
  Sex: Female
  Weight: 61.224 kg

DRUGS (6)
  1. MINOCYCLINE [Concomitant]
     Indication: ACNE
     Dosage: 100 MG, QD
  2. YAZ [Suspect]
     Indication: PRODUCT USED FOR UNKNOWN INDICATION
     Route: 048
     Dates: start: 20081101, end: 20090201
  3. ASCORBIC ACID [Concomitant]
  4. BENZACLIN [Concomitant]
  5. ANTIINFLAMMATORY/ANTIRHEUMATIC NON-STEROIDS [Concomitant]
     Dosage: UNK UNK, PRN
  6. TAZORAC [Concomitant]

REACTIONS (3)
  - PULMONARY FIBROSIS [None]
  - INFARCTION [None]
  - PULMONARY EMBOLISM [None]
